FAERS Safety Report 10654227 (Version 3)
Quarter: 2015Q1

REPORT INFORMATION
  Report Type: Spontaneous
  Country: US (occurrence: US)
  Receive Date: 20141216
  Receipt Date: 20150227
  Transmission Date: 20150720
  Serious: Yes (Hospitalization)
  Sender: FDA-Public Use
  Company Number: US-UNITED THERAPEUTICS-UNT-2014-011481

PATIENT
  Age: 62 Year
  Sex: Female
  Weight: 77.98 kg

DRUGS (2)
  1. REMODULIN [Suspect]
     Active Substance: TREPROSTINIL
     Dosage: 0.053 ?G/KG, CONTINUING
     Route: 058
     Dates: start: 20130426
  2. REMODULIN [Suspect]
     Active Substance: TREPROSTINIL
     Indication: PULMONARY HYPERTENSION
     Dosage: 0.053 ?G/KG, CONTINUING
     Route: 058
     Dates: start: 20130426

REACTIONS (6)
  - Infusion site oedema [Unknown]
  - Bronchitis [Unknown]
  - Unevaluable event [Unknown]
  - Medical device complication [Unknown]
  - Infusion site pain [Unknown]
  - Infusion site rash [Unknown]

NARRATIVE: CASE EVENT DATE: 2014
